FAERS Safety Report 5337902-8 (Version None)
Quarter: 2007Q2

REPORT INFORMATION
  Report Type: 
  Country: None (occurrence: None)
  Receive Date: 20070327
  Receipt Date: 20070105
  Transmission Date: 20071010
  Serious: No
  Sender: FDA-Public Use
  Company Number: 234745

PATIENT

DRUGS (1)
  1. AVASTIN [Suspect]
     Indication: NON-SMALL CELL LUNG CANCER

REACTIONS (1)
  - CHILLS [None]
